FAERS Safety Report 20289813 (Version 3)
Quarter: 2023Q4

REPORT INFORMATION
  Report Type: Report from Study
  Country: AT (occurrence: AT)
  Receive Date: 20220104
  Receipt Date: 20231010
  Transmission Date: 20240110
  Serious: Yes (Hospitalization)
  Sender: FDA-Public Use
  Company Number: AT-ROCHE-2972434

PATIENT
  Age: 73 Year
  Sex: Female
  Weight: 53 kg

DRUGS (40)
  1. LETROZOLE [Suspect]
     Active Substance: LETROZOLE
     Indication: HER2 positive breast cancer
     Dosage: 2.5 MILLIGRAM, QD
     Route: 048
     Dates: start: 20161021, end: 20200629
  2. TRASTUZUMAB [Suspect]
     Active Substance: TRASTUZUMAB
     Indication: HER2 positive breast cancer
     Dosage: 354 MG, Q3W (MOST RECENT DOSE PRIOR TO THE EVENT)
     Route: 042
     Dates: start: 20160629
  3. TRASTUZUMAB [Suspect]
     Active Substance: TRASTUZUMAB
     Dosage: 372 MILLIGRAM, Q3W
     Route: 042
     Dates: start: 20180719, end: 20200227
  4. TRASTUZUMAB [Suspect]
     Active Substance: TRASTUZUMAB
     Dosage: 372 MILLIGRAM, Q3W
     Route: 042
     Dates: start: 20200227, end: 20200520
  5. DOCETAXEL [Suspect]
     Active Substance: DOCETAXEL
     Indication: HER2 positive breast cancer
     Dosage: 75 MILLIGRAM/SQ. METER, Q3W
     Route: 042
     Dates: start: 20160629, end: 20161013
  6. FULVESTRANT [Suspect]
     Active Substance: FULVESTRANT
     Indication: HER2 positive breast cancer
     Dosage: 500 MILLIGRAM, Q28D
     Route: 058
     Dates: start: 20200716
  7. FULVESTRANT [Suspect]
     Active Substance: FULVESTRANT
     Dosage: UNK
     Route: 065
     Dates: start: 20211020
  8. PERTUZUMAB [Suspect]
     Active Substance: PERTUZUMAB
     Indication: HER2 positive breast cancer
     Dosage: 420 MG, Q3W (MOST RECENT DOSE PRIOR TO THE EVENT)
     Route: 042
     Dates: start: 20160629
  9. PERTUZUMAB [Suspect]
     Active Substance: PERTUZUMAB
     Dosage: 420 MILLIGRAM, Q3W
     Route: 042
     Dates: start: 20180719, end: 20200227
  10. PERTUZUMAB [Suspect]
     Active Substance: PERTUZUMAB
     Dosage: 420 MILLIGRAM, Q3W
     Route: 042
     Dates: start: 20200227, end: 20200520
  11. DENOSUMAB [Suspect]
     Active Substance: DENOSUMAB
     Indication: HER2 positive breast cancer
     Dosage: 120 MG, Q28D (MOST RECENT DOSE: 15/SEP/2021)
     Route: 058
     Dates: start: 20161121, end: 202101
  12. DENOSUMAB [Suspect]
     Active Substance: DENOSUMAB
     Dosage: 120 MILLIGRAM, Q28D
     Route: 058
     Dates: start: 20161121, end: 20210126
  13. DENOSUMAB [Suspect]
     Active Substance: DENOSUMAB
     Dosage: 120 MG, Q28D (MOST RECENT DOSE: 15/SEP/2021)
     Route: 058
     Dates: start: 20161121
  14. DENOSUMAB [Suspect]
     Active Substance: DENOSUMAB
     Dosage: UNK
     Route: 065
     Dates: start: 202101
  15. RIBOCICLIB [Suspect]
     Active Substance: RIBOCICLIB
     Indication: HER2 positive breast cancer
     Dosage: 600 MG(RECENT DOSE PRIOR TO EVENT: 24/OCT/2020)
     Route: 048
     Dates: start: 20200716
  16. RIBOCICLIB [Suspect]
     Active Substance: RIBOCICLIB
     Dosage: 400 MG(RECENT DOSE PRIOR TO EVENT: 18/NOV/2020)
     Route: 048
     Dates: start: 20200824
  17. RIBOCICLIB [Suspect]
     Active Substance: RIBOCICLIB
     Dosage: UNK (RECEIVED THE MOST RECENT DOSE OF RIBOCICLIB)
     Route: 065
     Dates: start: 20201024
  18. RIBOCICLIB [Suspect]
     Active Substance: RIBOCICLIB
     Dosage: UNK
     Route: 065
     Dates: start: 20201118
  19. RIBOCICLIB [Suspect]
     Active Substance: RIBOCICLIB
     Dosage: 75 MILLIGRAM
     Route: 048
     Dates: start: 202012, end: 202110
  20. PALBOCICLIB [Suspect]
     Active Substance: PALBOCICLIB
     Indication: HER2 positive breast cancer
     Dosage: 100 MG, Q28D (100.00 MG OTHER D1-D21, Q4W ORAL)
     Route: 048
     Dates: start: 202011, end: 202012
  21. PALBOCICLIB [Suspect]
     Active Substance: PALBOCICLIB
     Dosage: 75 MILLIGRAM, Q28D
     Route: 048
     Dates: start: 202012, end: 202110
  22. CAPECITABINE [Suspect]
     Active Substance: CAPECITABINE
     Indication: HER2 positive breast cancer
     Dosage: 3000 MG (FREQ: MOST RECENT DOSE PRIOR TO EVENT)
     Route: 048
     Dates: start: 20211025
  23. CAPECITABINE [Suspect]
     Active Substance: CAPECITABINE
     Dosage: UNK
     Route: 065
     Dates: start: 202201
  24. NEBIVOLOL HYDROCHLORIDE [Concomitant]
     Active Substance: NEBIVOLOL HYDROCHLORIDE
     Dosage: ONGOING = CHECKED
     Route: 065
     Dates: start: 20170115
  25. METHYLPREDNISOLONE ACEPONATE [Concomitant]
     Active Substance: METHYLPREDNISOLONE ACEPONATE
     Indication: Palmar-plantar erythrodysaesthesia syndrome
     Dosage: ONGOING = CHECKED
     Route: 065
     Dates: start: 20201111
  26. ELO MEL [Concomitant]
     Dosage: UNK
     Route: 065
     Dates: start: 20210908, end: 20210908
  27. Ospen [Concomitant]
     Indication: Osteonecrosis of jaw
     Dosage: ONGOING = CHECKED
     Route: 065
     Dates: start: 20210114
  28. BETAMETHASONE DIPROPIONATE [Concomitant]
     Active Substance: BETAMETHASONE DIPROPIONATE
     Indication: Rash
     Dosage: ONGOING = CHECKED
     Route: 065
     Dates: start: 20180621
  29. EUTHYROX [Concomitant]
     Active Substance: LEVOTHYROXINE SODIUM
     Dosage: ONGOING = CHECKED
     Route: 065
     Dates: start: 20210223
  30. AMOXICILLIN\CLAVULANATE POTASSIUM [Concomitant]
     Active Substance: AMOXICILLIN\CLAVULANATE POTASSIUM
     Indication: Osteonecrosis of jaw
     Dosage: UNK
     Route: 065
     Dates: start: 20210915
  31. ASPIRIN [Concomitant]
     Active Substance: ASPIRIN
     Dosage: ONGOING = CHECKED
     Route: 065
     Dates: start: 20170115
  32. AMPICILLIN [Concomitant]
     Active Substance: AMPICILLIN
     Indication: Osteonecrosis of jaw
     Dosage: UNK
     Route: 065
     Dates: start: 20210915, end: 20210915
  33. ENOXAPARIN SODIUM [Concomitant]
     Active Substance: ENOXAPARIN SODIUM
     Dosage: UNK
     Route: 065
     Dates: start: 20210915, end: 20210915
  34. LISINOPRIL [Concomitant]
     Active Substance: LISINOPRIL
     Dosage: ONGOING = CHECKED
     Route: 065
     Dates: start: 20170115
  35. BETAISODONA [Concomitant]
     Active Substance: POVIDONE-IODINE
     Indication: Paronychia
     Dosage: ONGOING = CHECKED
     Route: 065
     Dates: start: 20201111
  36. Novalgin [Concomitant]
     Indication: Osteonecrosis of jaw
     Dosage: UNK, ONGOING = CHECKED
     Route: 065
     Dates: start: 20210915
  37. MICRO-KALIUM [Concomitant]
     Dosage: UNK
     Route: 065
  38. ATORVASTATIN [Concomitant]
     Active Substance: ATORVASTATIN
     Indication: Hypercholesterolaemia
     Dosage: 20.00 MG (MILLIGRAM) TABLET PO (ORAL)
     Route: 048
     Dates: start: 201701, end: 201701
  39. HYDROMORPHONE HYDROCHLORIDE [Concomitant]
     Active Substance: HYDROMORPHONE HYDROCHLORIDE
     Indication: Pain
     Dosage: UNK, ONGOING = CHECKED
     Route: 065
     Dates: start: 20210915
  40. PANTOPRAZOLE SODIUM [Concomitant]
     Active Substance: PANTOPRAZOLE SODIUM
     Dosage: UNK
     Route: 065

REACTIONS (4)
  - Hypercalcaemia [Recovered/Resolved]
  - Pain [Recovering/Resolving]
  - Gastritis [Recovered/Resolved]
  - Palmar-plantar erythrodysaesthesia syndrome [Recovered/Resolved]

NARRATIVE: CASE EVENT DATE: 20210915
